FAERS Safety Report 4564049-0 (Version None)
Quarter: 2005Q1

REPORT INFORMATION
  Report Type: 
  Country: None (occurrence: None)
  Receive Date: 20050128
  Receipt Date: 20041223
  Transmission Date: 20050727
  Serious: No
  Sender: FDA-Public Use
  Company Number: US-BRISTOL-MYERS SQUIBB COMPANY-12806295

PATIENT
  Age: 25 Year
  Sex: Female
  Weight: 100 kg

DRUGS (2)
  1. CEFZIL [Suspect]
     Dosage: EXPOSURE BY CONTACT
     Dates: start: 20041101
  2. CONTRACEPTIVE [Concomitant]

REACTIONS (2)
  - DERMATITIS EXFOLIATIVE [None]
  - RASH [None]
